FAERS Safety Report 18164209 (Version 2)
Quarter: 2021Q3

REPORT INFORMATION
  Report Type: Other
  Country: FR (occurrence: FR)
  Receive Date: 20200818
  Receipt Date: 20210701
  Transmission Date: 20211014
  Serious: Yes (Death)
  Sender: FDA-Public Use
  Company Number: FR-NOVA LABORATORIES LIMITED-2088741

PATIENT
  Age: 79 Year
  Sex: Female

DRUGS (3)
  1. PURIXAN [Suspect]
     Active Substance: MERCAPTOPURINE
     Indication: ACUTE MYELOID LEUKAEMIA
  2. METHOTREXATE. [Suspect]
     Active Substance: METHOTREXATE
  3. ALL?TRANS RETINOIC ACID [Suspect]
     Active Substance: TRETINOIN

REACTIONS (3)
  - Off label use [None]
  - Disease progression [Fatal]
  - Drug ineffective [Unknown]
